FAERS Safety Report 6084367-7 (Version None)
Quarter: 2009Q1

REPORT INFORMATION
  Report Type: 
  Country: None (occurrence: None)
  Receive Date: 20090217
  Receipt Date: 20090205
  Transmission Date: 20090719
  Serious: Yes (Disabling, Other)
  Sender: FDA-Public Use
  Company Number: US024549

PATIENT
  Age: 65 Year
  Sex: Male
  Weight: 75 kg

DRUGS (8)
  1. TRISENOX [Suspect]
     Indication: ACUTE PROMYELOCYTIC LEUKAEMIA
     Dosage: 0.25 MG/KG INTRAVENOUS DRIP
     Route: 041
     Dates: start: 20080201
  2. TRISENOX [Suspect]
     Indication: ACUTE PROMYELOCYTIC LEUKAEMIA
     Dosage: 0.3 MG/KG DAY 1-5 WEEK 1: TWICE/WEEKLY WEEKS 2-4 CYCLICAL INTRAVENOUS DRIP
     Route: 041
     Dates: start: 20080218, end: 20081114
  3. RAMIPRIL [Concomitant]
  4. MAGNESIUM GLYCEROPHOSPHATE [Concomitant]
  5. SLOW-K [Concomitant]
  6. TRAMADOL HCL [Concomitant]
  7. PARACETAMOL [Concomitant]
  8. ATRA [Concomitant]

REACTIONS (1)
  - RED BLOOD CELL ABNORMALITY [None]
